FAERS Safety Report 8521758-6 (Version None)
Quarter: 2012Q3

REPORT INFORMATION
  Report Type: 
  Country: None (occurrence: None)
  Receive Date: 20120706
  Receipt Date: 20120626
  Transmission Date: 20120928
  Serious: Yes (Other)
  Sender: FDA-Public Use
  Company Number: ADR-2012-00021

PATIENT
  Sex: Male

DRUGS (2)
  1. DANTRIUM [Concomitant]
  2. LIORESAL [Suspect]
     Dosage: INTRACTABLE SPASTICITY POST SPINAL CORD INJURY

REACTIONS (1)
  - STAPHYLOCOCCAL INFECTION [None]
